FAERS Safety Report 7184068-8 (Version None)
Quarter: 2010Q4

REPORT INFORMATION
  Report Type: 
  Country: None (occurrence: None)
  Receive Date: 20101222
  Receipt Date: 20101209
  Transmission Date: 20110411
  Serious: Yes (Other)
  Sender: FDA-Public Use
  Company Number: PHHY2010ES83800

PATIENT
  Age: 60 Year
  Sex: Female

DRUGS (2)
  1. PAMIDRONATE DISODIUM [Suspect]
     Indication: MULTIPLE MYELOMA
     Route: 042
  2. ACTONEL [Suspect]
     Indication: MULTIPLE MYELOMA
     Dosage: WEEKLY

REACTIONS (9)
  - DEBRIDEMENT [None]
  - GINGIVAL INFECTION [None]
  - IMPAIRED HEALING [None]
  - OSTEONECROSIS OF JAW [None]
  - PRIMARY SEQUESTRUM [None]
  - PURULENCE [None]
  - SEQUESTRECTOMY [None]
  - SURGERY [None]
  - TOOTH EXTRACTION [None]
